FAERS Safety Report 15360300 (Version 1)
Quarter: 2018Q3

REPORT INFORMATION
  Report Type: Spontaneous
  Country: US (occurrence: US)
  Receive Date: 20180907
  Receipt Date: 20180907
  Transmission Date: 20181010
  Serious: Yes (Hospitalization, Other)
  Sender: FDA-Public Use
  Company Number: US-ELI_LILLY_AND_COMPANY-US201808015224

PATIENT
  Sex: Male

DRUGS (2)
  1. TRESIBA [Concomitant]
     Active Substance: INSULIN DEGLUDEC
     Indication: PRODUCT USED FOR UNKNOWN INDICATION
  2. HUMALOG [Suspect]
     Active Substance: INSULIN LISPRO
     Indication: DIABETES MELLITUS
     Dosage: UNK, UNKNOWN
     Route: 058

REACTIONS (7)
  - Irritability [Unknown]
  - Drug dose omission [Unknown]
  - Blood glucose increased [Recovering/Resolving]
  - Glaucoma [Unknown]
  - Feeling abnormal [Unknown]
  - Blindness unilateral [Unknown]
  - Anxiety [Unknown]

NARRATIVE: CASE EVENT DATE: 20180829
